FAERS Safety Report 6383959-5 (Version None)
Quarter: 2009Q4

REPORT INFORMATION
  Report Type: 
  Country: None (occurrence: None)
  Receive Date: 20091001
  Receipt Date: 20090928
  Transmission Date: 20100525
  Serious: Yes (Other)
  Sender: FDA-Public Use
  Company Number: US-ROXANE LABORATORIES, INC.-2009-RO-01006RO

PATIENT
  Age: 45 Year

DRUGS (10)
  1. LAMOTRIGINE [Suspect]
     Indication: EPILEPSY
     Dosage: 400 MG
  2. RISPERIDONE [Suspect]
  3. ZOLPIDEM [Suspect]
  4. AMRIX [Suspect]
  5. CLONAZEPAM [Suspect]
  6. OXYCONTIN [Suspect]
  7. FOLIC ACID [Suspect]
  8. CLOPIDOGREL [Suspect]
  9. INSULIN [Suspect]
  10. LASIX [Suspect]

REACTIONS (1)
  - WITHDRAWAL SYNDROME [None]
